FAERS Safety Report 25516449 (Version 1)
Quarter: 2025Q3

REPORT INFORMATION
  Report Type: Spontaneous
  Country: US (occurrence: US)
  Receive Date: 20250704
  Receipt Date: 20250704
  Transmission Date: 20251021
  Serious: No
  Sender: RADIUS PHARM
  Company Number: US-RADIUS HEALTH INC.-2025US002208

PATIENT
  Sex: Female

DRUGS (1)
  1. TYMLOS [Suspect]
     Active Substance: ABALOPARATIDE
     Indication: Senile osteoporosis
     Dosage: 80 MICROGRAM, QD
     Route: 058

REACTIONS (7)
  - Injection site discomfort [Unknown]
  - Sleep disorder [Unknown]
  - Facial pain [Unknown]
  - Abdominal discomfort [Unknown]
  - Headache [Unknown]
  - Insomnia [Unknown]
  - Product use complaint [Unknown]
